FAERS Safety Report 21212609 (Version 1)
Quarter: 2022Q3

REPORT INFORMATION
  Report Type: Spontaneous
  Country: US (occurrence: US)
  Receive Date: 20220815
  Receipt Date: 20220815
  Transmission Date: 20221027
  Serious: No
  Sender: FDA-Public Use
  Company Number: US-BRAINTREE LABORATORIES, INC.-2022BTE00192

PATIENT
  Sex: Female
  Weight: 63.503 kg

DRUGS (8)
  1. PEG-3350 AND ELECTROLYTES [Suspect]
     Active Substance: POLYETHYLENE GLYCOL 3350\POTASSIUM CHLORIDE\SODIUM BICARBONATE\SODIUM CHLORIDE\SODIUM SULFATE
     Indication: Functional gastrointestinal disorder
     Dosage: { 1 L, 1X/DAY EVERY MORNING
     Route: 048
     Dates: start: 1997
  2. PEG-3350 AND ELECTROLYTES [Suspect]
     Active Substance: POLYETHYLENE GLYCOL 3350\POTASSIUM CHLORIDE\SODIUM BICARBONATE\SODIUM CHLORIDE\SODIUM SULFATE
     Dosage: { 1 L, 1X/DAY EVERY MORNING
     Route: 048
     Dates: start: 2022
  3. PEG-3350 AND ELECTROLYTES [Suspect]
     Active Substance: POLYETHYLENE GLYCOL 3350\POTASSIUM CHLORIDE\SODIUM BICARBONATE\SODIUM CHLORIDE\SODIUM SULFATE
     Dosage: { 1 L, 1X/DAY EVERY MORNING
     Route: 048
     Dates: start: 2022
  4. DULCOLAX NOS [Suspect]
     Active Substance: BISACODYL OR DOCUSATE SODIUM
     Indication: Functional gastrointestinal disorder
     Dosage: UNK, 3X/DAY
     Dates: start: 20220209, end: 2022
  5. DULCOLAX NOS [Suspect]
     Active Substance: BISACODYL OR DOCUSATE SODIUM
     Dosage: UNK, 2X/DAY
     Dates: start: 2022, end: 2022
  6. PURELAX [Suspect]
     Active Substance: POLYETHYLENE GLYCOL 3350
     Indication: Functional gastrointestinal disorder
     Dosage: UNK, 2X/DAY MORNING AND NIGHT
     Route: 048
     Dates: start: 2022
  7. ESOMEPRAZOLE MAGNESIUM [Concomitant]
     Active Substance: ESOMEPRAZOLE MAGNESIUM
     Dosage: 40 MG, 1X/DAY EVERY MORNING
  8. UNSPECIFIED INGREDIENT [Concomitant]
     Active Substance: UNSPECIFIED INGREDIENT

REACTIONS (3)
  - Drug ineffective for unapproved indication [Not Recovered/Not Resolved]
  - Wrong technique in product usage process [Not Recovered/Not Resolved]
  - Abdominal distension [Not Recovered/Not Resolved]

NARRATIVE: CASE EVENT DATE: 19970101
